FAERS Safety Report 8770451 (Version 3)
Quarter: 2012Q4

REPORT INFORMATION
  Report Type: Report from Study
  Country: DE (occurrence: DE)
  Receive Date: 20120906
  Receipt Date: 20120925
  Transmission Date: 20130627
  Serious: Yes (Hospitalization)
  Sender: FDA-Public Use
  Company Number: DE-AMGEN-DEUCT2012055098

PATIENT
  Age: 77 Year
  Sex: Male
  Weight: 64 kg

DRUGS (17)
  1. PANITUMUMAB [Suspect]
     Indication: NON-SMALL CELL LUNG CANCER
     Dosage: 7.2 mg/m2, q3wk
     Route: 042
     Dates: start: 20111108
  2. PEMETREXED [Concomitant]
     Dosage: 500 mg/m2, UNK
     Route: 042
     Dates: start: 20111108
  3. CISPLATIN [Concomitant]
     Dosage: 75 mg/m2, UNK
     Route: 042
     Dates: start: 20111108
  4. OXYGEN [Concomitant]
  5. FOLSAN [Concomitant]
     Dosage: 0.4 mg, qd
  6. FORTECORTIN [Concomitant]
     Dosage: 4 mg, bid
  7. ASA [Concomitant]
     Dosage: 100 mg, qd
  8. CITALOPRAM [Concomitant]
     Dosage: 20 mg, qd
  9. METOPROLOL [Concomitant]
     Dosage: 50 mg, qd
  10. TAMSULOSINE HCL A [Concomitant]
     Dosage: 0.4 mg, qd
  11. VIANI [Concomitant]
     Dosage: UNK UNK, bid
  12. SPIRIVA [Concomitant]
     Dosage: 18 mug, qd
  13. OMEPRAZOLE [Concomitant]
     Dosage: 40 mg, qod
  14. METROGEL [Concomitant]
  15. BETNESOL [Concomitant]
  16. FENISTIL [Concomitant]
     Dosage: UNK UNK, qd
  17. ORAYCEA [Concomitant]
     Dosage: 40 mg, qd

REACTIONS (1)
  - Pneumothorax [Recovered/Resolved]
